FAERS Safety Report 4651223-8 (Version None)
Quarter: 2005Q2

REPORT INFORMATION
  Report Type: 
  Country: None (occurrence: None)
  Receive Date: 20050503
  Receipt Date: 20050418
  Transmission Date: 20051028
  Serious: Yes (Other)
  Sender: FDA-Public Use
  Company Number: PHEH2005US04507

PATIENT
  Sex: Female

DRUGS (4)
  1. ZOMETA [Suspect]
     Indication: METASTASES TO BONE
     Dosage: 4 MG MONTHLY
     Dates: start: 20020411, end: 20050210
  2. FASLODEX [Concomitant]
  3. TAMOXIFEN CITRATE [Concomitant]
  4. MEGACE [Concomitant]
     Indication: BREAST CANCER METASTATIC
     Dosage: 180 MG, BID
     Dates: start: 20041011

REACTIONS (7)
  - ANKLE FRACTURE [None]
  - ASEPTIC NECROSIS BONE [None]
  - BONE DISORDER [None]
  - CHEST PAIN [None]
  - CHEST WALL PAIN [None]
  - IMPAIRED HEALING [None]
  - ORAL PAIN [None]
